FAERS Safety Report 8154347-6 (Version None)
Quarter: 2012Q1

REPORT INFORMATION
  Report Type: 
  Country: None (occurrence: None)
  Receive Date: 20120221
  Receipt Date: 20120214
  Transmission Date: 20120608
  Serious: Yes (Hospitalization)
  Sender: FDA-Public Use
  Company Number: CA-B.I. PHARMACEUTICALS,INC./RIDGEFIELD-2012-CN-00327CN

PATIENT
  Age: 78 Year
  Sex: Male

DRUGS (5)
  1. AMIODARONE HCL [Concomitant]
     Route: 065
  2. BISOPROLOL FUMARATE [Concomitant]
     Route: 065
  3. METOPROLOL TARTRATE [Concomitant]
     Route: 065
  4. MULTAQ [Suspect]
     Route: 065
  5. PRADAXA [Suspect]
     Dosage: 220 MG
     Route: 065

REACTIONS (2)
  - DRUG INTERACTION [None]
  - PULMONARY ALVEOLAR HAEMORRHAGE [None]
